FAERS Safety Report 6567759-9 (Version None)
Quarter: 2010Q1

REPORT INFORMATION
  Report Type: 
  Country: None (occurrence: None)
  Receive Date: 20100203
  Receipt Date: 20100122
  Transmission Date: 20100710
  Serious: Yes (Other)
  Sender: FDA-Public Use
  Company Number: US-JNJFOC-20100109588

PATIENT
  Age: 62 Year
  Sex: Female
  Weight: 104.33 kg

DRUGS (11)
  1. REMICADE [Suspect]
     Indication: PSORIASIS
     Route: 042
     Dates: start: 20091201
  2. FOSAMAX [Concomitant]
  3. SYNTHROID [Concomitant]
  4. ZETIA [Concomitant]
  5. WELCHOL [Concomitant]
  6. MEVACOR [Concomitant]
  7. MULTI-VITAMINS [Concomitant]
  8. VITAMIN C [Concomitant]
  9. CALCIUM WITH VITAMIN D [Concomitant]
  10. MAGNESIUM [Concomitant]
  11. VITAMIN B-12 [Concomitant]
     Indication: OSTEOPOROSIS
     Route: 050

REACTIONS (1)
  - CERVICAL DYSPLASIA [None]
